FAERS Safety Report 18526788 (Version 1)
Quarter: 2020Q4

REPORT INFORMATION
  Report Type: Spontaneous
  Country: US (occurrence: US)
  Receive Date: 20201120
  Receipt Date: 20201120
  Transmission Date: 20210114
  Serious: No
  Sender: FDA-Public Use
  Company Number: US-009507513-2011USA001381

PATIENT
  Age: 59 Year
  Sex: Male

DRUGS (10)
  1. NOXAFIL [Suspect]
     Active Substance: POSACONAZOLE
     Indication: FUNGAL SKIN INFECTION
     Dosage: 300 MG, DAILY
     Route: 048
  2. VALGANCICLOVIR HYDROCHLORIDE. [Concomitant]
     Active Substance: VALGANCICLOVIR HYDROCHLORIDE
     Indication: PROPHYLAXIS
     Dosage: 450 MG, TWICE DAILY
  3. SULFAMETHOXAZOLE [Concomitant]
     Active Substance: SULFAMETHOXAZOLE
     Indication: PROPHYLAXIS
     Dosage: 400 MG, DAILY
  4. NOXAFIL [Suspect]
     Active Substance: POSACONAZOLE
     Dosage: 200 MG, DAILY
     Route: 048
  5. TACROLIMUS. [Concomitant]
     Active Substance: TACROLIMUS
     Indication: PROPHYLAXIS AGAINST TRANSPLANT REJECTION
     Dosage: 0.3 MG, TWICE DAILY
  6. NYSTATIN. [Concomitant]
     Active Substance: NYSTATIN
     Indication: PROPHYLAXIS
     Dosage: 5 ML SWISH/ SWALLOW, UNK
  7. DOXYCYCLINE. [Concomitant]
     Active Substance: DOXYCYCLINE
     Indication: CELLULITIS
     Dosage: 100 MG, TWICE DAILY
  8. AMPHOTERICIN B. [Concomitant]
     Active Substance: AMPHOTERICIN B
     Indication: FUNGAL SKIN INFECTION
     Dosage: 3 MG/KG, DAILY
  9. MYCOPHENOLIC ACID. [Concomitant]
     Active Substance: MYCOPHENOLIC ACID
     Indication: PROPHYLAXIS AGAINST TRANSPLANT REJECTION
     Dosage: 1080 MG, TWICE DAILY
  10. TRIMETHOPRIM. [Concomitant]
     Active Substance: TRIMETHOPRIM
     Indication: PROPHYLAXIS
     Dosage: 80 MG, DAILY

REACTIONS (1)
  - Off label use [Unknown]
